FAERS Safety Report 13045987 (Version 1)
Quarter: 2016Q4

REPORT INFORMATION
  Report Type: Spontaneous
  Country: PL (occurrence: PL)
  Receive Date: 20161220
  Receipt Date: 20161220
  Transmission Date: 20170207
  Serious: Yes (Other)
  Sender: FDA-Public Use
  Company Number: PL-PFIZER INC-2016579294

PATIENT
  Sex: Male

DRUGS (1)
  1. INLYTA [Suspect]
     Active Substance: AXITINIB
     Indication: METASTATIC RENAL CELL CARCINOMA

REACTIONS (6)
  - Erectile dysfunction [Unknown]
  - Stomatitis [Unknown]
  - Diarrhoea [Unknown]
  - Cachexia [Unknown]
  - Decreased appetite [Unknown]
  - Hypothyroidism [Unknown]
